APPROVED DRUG PRODUCT: MORPHINE SULFATE
Active Ingredient: MORPHINE SULFATE
Strength: 4MG/ML
Dosage Form/Route: INJECTABLE;INJECTION
Application: A205758 | Product #001 | TE Code: AP
Applicant: HIKMA PHARMACEUTICALS USA INC
Approved: May 21, 2015 | RLD: No | RS: Yes | Type: RX